FAERS Safety Report 8207957-1 (Version None)
Quarter: 2012Q1

REPORT INFORMATION
  Report Type: 
  Country: None (occurrence: None)
  Receive Date: 20120314
  Receipt Date: 20120312
  Transmission Date: 20120608
  Serious: No
  Sender: FDA-Public Use
  Company Number: US-PFIZER INC-2012065224

PATIENT
  Sex: Female
  Weight: 113.38 kg

DRUGS (5)
  1. METHOCARBAMOL [Concomitant]
     Indication: MUSCLE SPASMS
     Dosage: UNK
  2. LYRICA [Suspect]
     Indication: FIBROMYALGIA
     Dosage: 300 MG, 2X/DAY
     Route: 048
     Dates: start: 20070101
  3. LORAZEPAM [Concomitant]
     Dosage: UNK
  4. HYDROCODONE [Concomitant]
     Indication: PAIN
     Dosage: UNK
  5. TEMAZEPAM [Concomitant]
     Dosage: UNK

REACTIONS (2)
  - URTICARIA [None]
  - PRURITUS [None]
